FAERS Safety Report 5999484-7 (Version None)
Quarter: 2008Q4

REPORT INFORMATION
  Report Type: 
  Country: None (occurrence: None)
  Receive Date: 20081211
  Receipt Date: 20081211
  Transmission Date: 20090506
  Serious: Yes (Other)
  Sender: FDA-Public Use
  Company Number: None

PATIENT
  Age: 58 Year
  Sex: Female
  Weight: 90.7194 kg

DRUGS (2)
  1. DICLOFENAC SODIUM [Suspect]
     Indication: ANTIINFLAMMATORY THERAPY
     Dosage: 1 TABLET 1 TIME/DAY 1 IN THE A.M. (MORNING)
     Dates: start: 20081115, end: 20081130
  2. DICLOFENAC SODIUM [Suspect]
     Indication: SCIATICA
     Dosage: 1 TABLET 1 TIME/DAY 1 IN THE A.M. (MORNING)
     Dates: start: 20081115, end: 20081130

REACTIONS (2)
  - POLLAKIURIA [None]
  - THERAPEUTIC RESPONSE UNEXPECTED [None]
